FAERS Safety Report 16966310 (Version 2)
Quarter: 2019Q4

REPORT INFORMATION
  Report Type: Report from Study
  Country: DE (occurrence: DE)
  Receive Date: 20191028
  Receipt Date: 20191205
  Transmission Date: 20200122
  Serious: Yes (Other)
  Sender: FDA-Public Use
  Company Number: DE-MYLANLABS-2019M1100970

PATIENT
  Age: 45 Year
  Sex: Female

DRUGS (3)
  1. REBIF [Interacting]
     Active Substance: INTERFERON BETA-1A
     Indication: MULTIPLE SCLEROSIS
     Dosage: STARTED IN 2016 OR EARLIER
  2. BRONCHICUM                         /00098001/ [Concomitant]
     Indication: PRODUCT USED FOR UNKNOWN INDICATION
  3. TRASTUZUMAB. [Suspect]
     Active Substance: TRASTUZUMAB
     Indication: BREAST CANCER
     Dates: start: 201811

REACTIONS (3)
  - Breast cancer [Not Recovered/Not Resolved]
  - Type 2 diabetes mellitus [Unknown]
  - Drug interaction [Unknown]

NARRATIVE: CASE EVENT DATE: 201811
